FAERS Safety Report 9873922 (Version 2)
Quarter: 2014Q1

REPORT INFORMATION
  Report Type: Other
  Country: US (occurrence: US)
  Receive Date: 20140206
  Receipt Date: 20140206
  Transmission Date: 20141002
  Serious: No
  Sender: FDA-Public Use
  Company Number: US-ACORDA-ACO_34722_2013

PATIENT
  Sex: Male
  Weight: 88.44 kg

DRUGS (9)
  1. AMPYRA [Suspect]
     Indication: GAIT DISTURBANCE
     Dosage: 10 MG, BID
     Route: 048
     Dates: start: 20110612, end: 20121212
  2. AMPYRA [Suspect]
     Indication: RELAPSING-REMITTING MULTIPLE SCLEROSIS
     Dosage: 10 MG, Q 12 HRS
     Route: 048
     Dates: start: 20120131, end: 20120709
  3. AMPYRA [Suspect]
     Dosage: 10 MG, QD
     Route: 048
     Dates: start: 2013
  4. ZANAFLEX [Suspect]
     Indication: MUSCLE SPASTICITY
     Dosage: 4 MG, QID
     Route: 048
     Dates: start: 1999
  5. ZANAFLEX [Suspect]
     Indication: MULTIPLE SCLEROSIS
  6. COPAXONE [Concomitant]
     Indication: MULTIPLE SCLEROSIS
     Dosage: 20 MG, QOD
     Route: 058
  7. FLEXERIL [Concomitant]
     Indication: MULTIPLE SCLEROSIS
     Dosage: 10 MG, TID
     Route: 048
  8. CASCARA SAGRADA [Concomitant]
     Indication: PRODUCT USED FOR UNKNOWN INDICATION
     Dosage: UNK
  9. FIBER [Concomitant]
     Indication: PRODUCT USED FOR UNKNOWN INDICATION
     Dosage: UNK, PRN

REACTIONS (3)
  - Dyslexia [Unknown]
  - Constipation [Recovering/Resolving]
  - Drug ineffective [Unknown]
